FAERS Safety Report 22963363 (Version 3)
Quarter: 2023Q4

REPORT INFORMATION
  Report Type: Report from Study
  Country: FR (occurrence: FR)
  Receive Date: 20230920
  Receipt Date: 20231103
  Transmission Date: 20240110
  Serious: Yes (Death)
  Sender: FDA-Public Use
  Company Number: FR-GILEAD-2023-0644448

PATIENT
  Age: 56 Year
  Sex: Male

DRUGS (1)
  1. AXICABTAGENE CILOLEUCEL [Suspect]
     Active Substance: AXICABTAGENE CILOLEUCEL
     Indication: Diffuse large B-cell lymphoma
     Dosage: UNK
     Route: 042
     Dates: start: 20230724, end: 20230724

REACTIONS (2)
  - Septic shock [Fatal]
  - Natural killer cell count [Unknown]

NARRATIVE: CASE EVENT DATE: 20230801
